FAERS Safety Report 9342557 (Version 1)
Quarter: 2013Q2

REPORT INFORMATION
  Report Type: Spontaneous
  Country: BR (occurrence: BR)
  Receive Date: 20130611
  Receipt Date: 20130611
  Transmission Date: 20140414
  Serious: Yes (Hospitalization)
  Sender: FDA-Public Use
  Company Number: BR-PFIZER INC-2013173923

PATIENT
  Age: 33 Year
  Sex: Male
  Weight: 96 kg

DRUGS (4)
  1. ATENOLOL [Suspect]
     Indication: HYPERTENSION
     Dosage: 100 MG, 1X/DAY
     Dates: start: 2012
  2. CRESTOR [Suspect]
     Indication: BLOOD CHOLESTEROL INCREASED
     Dosage: 40 MG, 1X/DAY
     Route: 048
     Dates: start: 2012
  3. BRILINTA [Suspect]
     Indication: CORONARY ARTERY OCCLUSION
     Dosage: 90 MG, 2X/DAY
     Route: 048
     Dates: start: 201305
  4. GLIFAGE [Concomitant]
     Indication: GLUCOSE TOLERANCE IMPAIRED
     Dosage: UNK

REACTIONS (4)
  - Coronary artery occlusion [Recovered/Resolved]
  - Headache [Not Recovered/Not Resolved]
  - Nausea [Not Recovered/Not Resolved]
  - Dizziness [Not Recovered/Not Resolved]
